FAERS Safety Report 5143652-3 (Version None)
Quarter: 2006Q4

REPORT INFORMATION
  Report Type: 
  Country: None (occurrence: None)
  Receive Date: 20061103
  Receipt Date: 20061010
  Transmission Date: 20070319
  Serious: Yes (Disabling, Other)
  Sender: FDA-Public Use
  Company Number: DE-PURDUE-DEU_2006_0002523

PATIENT
  Age: 85 Year
  Sex: Female

DRUGS (2)
  1. OXYGESIC 5 MG [Suspect]
     Indication: NEURALGIA
     Dosage: 5 MG, BID
     Route: 048
     Dates: start: 20060929, end: 20061003
  2. LYRICA [Concomitant]

REACTIONS (5)
  - ABASIA [None]
  - FALL [None]
  - GAIT DISTURBANCE [None]
  - INTRACRANIAL PRESSURE INCREASED [None]
  - SPEECH DISORDER [None]
